FAERS Safety Report 9282861 (Version 2)
Quarter: 2014Q3

REPORT INFORMATION
  Report Type: Spontaneous
  Country: US (occurrence: US)
  Receive Date: 20130510
  Receipt Date: 20140805
  Transmission Date: 20150326
  Serious: Yes (Hospitalization)
  Sender: FDA-Public Use
  Company Number: US-BAYER-2013-057922

PATIENT
  Age: 32 Year
  Sex: Female
  Weight: 53.61 kg

DRUGS (18)
  1. MARCAINE [Concomitant]
     Active Substance: BUPIVACAINE HYDROCHLORIDE
  2. MOTRIN [Concomitant]
     Active Substance: IBUPROFEN
     Dosage: 800 MG, UNK
     Route: 048
  3. ZOLOFT [Concomitant]
     Active Substance: SERTRALINE HYDROCHLORIDE
     Indication: DEPRESSION
     Dosage: UNK
     Dates: start: 2005
  4. CLEOCIN [Concomitant]
     Active Substance: CLINDAMYCIN PHOSPHATE
     Dosage: 900 MG, UNK
     Route: 042
  5. MYLANTA [CALCIUM CARBONATE] [Concomitant]
     Dosage: 80 MG, UNK
     Route: 048
  6. YAZ [Suspect]
     Active Substance: DROSPIRENONE\ETHINYL ESTRADIOL
     Dosage: UNK
     Dates: start: 200806, end: 200902
  7. PERCODAN [Concomitant]
     Active Substance: ASPIRIN\OXYCODONE HYDROCHLORIDE
     Indication: PAIN
     Dosage: UNK MG, UNK
     Route: 048
  8. FENTANYL. [Concomitant]
     Active Substance: FENTANYL
  9. PITOCIN [Concomitant]
     Active Substance: OXYTOCIN
     Dosage: 125CC/HOUR
     Route: 042
  10. DOCOSAHEXANOIC ACID [Concomitant]
  11. PROPOXYPHENE HYDROCHLORIDE AND ACETAMINOPHEN [Concomitant]
     Active Substance: ACETAMINOPHEN\PROPOXYPHENE HYDROCHLORIDE
     Dosage: 100 MG, UNK
  12. ZOFRAN [Concomitant]
     Active Substance: ONDANSETRON HYDROCHLORIDE
     Dosage: 4 MG, UNK
  13. PRENATAL VITAMINS [Concomitant]
     Active Substance: VITAMINS
  14. TORADOL [Concomitant]
     Active Substance: KETOROLAC TROMETHAMINE
     Dosage: 30 MG, UNK
     Route: 042
  15. NEOSYNEPHRINE [Concomitant]
     Active Substance: PHENYLEPHRINE HYDROCHLORIDE
  16. DILAUDID [Concomitant]
     Active Substance: HYDROMORPHONE HYDROCHLORIDE
     Dosage: 0.2MG/HOUR BASAL RATE
  17. SENOKOT [Concomitant]
     Active Substance: SENNOSIDES
     Dosage: UNK UNK, BID
     Route: 048
  18. LANOLIN. [Concomitant]
     Active Substance: LANOLIN

REACTIONS (13)
  - Back pain [None]
  - Insomnia [None]
  - Anxiety [None]
  - Abdominal pain [None]
  - Emotional distress [None]
  - Depression [None]
  - Pulmonary embolism [None]
  - Injury [None]
  - Pain [None]
  - General physical health deterioration [None]
  - Dyspnoea [None]
  - Movement disorder [None]
  - Thrombophlebitis superficial [None]

NARRATIVE: CASE EVENT DATE: 200911
